FAERS Safety Report 17973403 (Version 2)
Quarter: 2020Q3

REPORT INFORMATION
  Report Type: Spontaneous
  Country: DE (occurrence: DE)
  Receive Date: 20200702
  Receipt Date: 20200729
  Transmission Date: 20201103
  Serious: Yes (Other)
  Sender: FDA-Public Use
  Company Number: DE-TEVA-2020-DE-1795716

PATIENT
  Age: 66 Year
  Sex: Female
  Weight: 90 kg

DRUGS (2)
  1. BISOPROLOL?RATIOPHARM 2,5 MG TABLETTEN [Suspect]
     Active Substance: BISOPROLOL
     Indication: TACHYCARDIA
  2. BISOPROLOL?RATIOPHARM 2,5 MG TABLETTEN [Suspect]
     Active Substance: BISOPROLOL
     Indication: HYPERTENSION
     Dosage: 5 MILLIGRAM DAILY; SINCE 3 YEARS
     Route: 048
     Dates: start: 20170223

REACTIONS (6)
  - Nasal congestion [Unknown]
  - Cough [Unknown]
  - Sudden hearing loss [Not Recovered/Not Resolved]
  - Tinnitus [Not Recovered/Not Resolved]
  - Hyperacusis [Unknown]
  - Auditory disorder [Not Recovered/Not Resolved]

NARRATIVE: CASE EVENT DATE: 20200625
